FAERS Safety Report 10283947 (Version 1)
Quarter: 2014Q3

REPORT INFORMATION
  Report Type: Spontaneous
  Country: US (occurrence: None)
  Receive Date: 20140703
  Receipt Date: 20140703
  Transmission Date: 20150326
  Serious: Yes (Hospitalization)
  Sender: FDA-Public Use
  Company Number: None

PATIENT
  Age: 56 Year
  Sex: Female

DRUGS (11)
  1. XELODA [Suspect]
     Active Substance: CAPECITABINE
     Indication: COLON CANCER
     Dosage: 1 TABLET BID ORAL
     Route: 048
     Dates: start: 201405
  2. EFFIENT [Concomitant]
     Active Substance: PRASUGREL HYDROCHLORIDE
  3. PROMETHAZINE [Concomitant]
     Active Substance: PROMETHAZINE\PROMETHAZINE HYDROCHLORIDE
  4. XANAX [Concomitant]
     Active Substance: ALPRAZOLAM
  5. ZOFRAN [Concomitant]
     Active Substance: ONDANSETRON HYDROCHLORIDE
  6. VITAMIN D [Concomitant]
     Active Substance: CHOLECALCIFEROL
  7. XELODA [Suspect]
     Active Substance: CAPECITABINE
     Indication: COLON CANCER
     Dosage: 4 TABLETS BID ORAL
     Route: 048
     Dates: start: 201405
  8. VITAMIN C [Concomitant]
     Active Substance: ASCORBIC ACID
  9. DEXAMETHASONE. [Concomitant]
     Active Substance: DEXAMETHASONE
  10. ASPIRIN. [Concomitant]
     Active Substance: ASPIRIN
  11. SIMVASTATIN. [Concomitant]
     Active Substance: SIMVASTATIN

REACTIONS (4)
  - Diarrhoea [None]
  - Abasia [None]
  - Hypotension [None]
  - Skin discolouration [None]

NARRATIVE: CASE EVENT DATE: 20140701
